FAERS Safety Report 5416947-3 (Version None)
Quarter: 2007Q3

REPORT INFORMATION
  Report Type: 
  Country: None (occurrence: None)
  Receive Date: 20070816
  Receipt Date: 20070803
  Transmission Date: 20080115
  Serious: Yes (Other)
  Sender: FDA-Public Use
  Company Number: US-PFIZER INC-2007065677

PATIENT
  Sex: Male
  Weight: 77.272 kg

DRUGS (3)
  1. NEURONTIN [Suspect]
     Indication: NEUROPATHY
     Dates: start: 20050101, end: 20050101
  2. INSULIN [Concomitant]
     Indication: DIABETES MELLITUS
  3. CYMBALTA [Concomitant]

REACTIONS (3)
  - CONFUSIONAL STATE [None]
  - DISORIENTATION [None]
  - HYPOAESTHESIA [None]
